FAERS Safety Report 6546549-7 (Version None)
Quarter: 2010Q1

REPORT INFORMATION
  Report Type: 
  Country: None (occurrence: None)
  Receive Date: 20100122
  Receipt Date: 20100120
  Transmission Date: 20100710
  Serious: Yes (Death)
  Sender: FDA-Public Use
  Company Number: US-B.I. PHARMACEUTICALS,INC./RIDGEFIELD-2010-BP-00690BP

PATIENT
  Age: 96 Year
  Sex: Male

DRUGS (1)
  1. FLOMAX [Suspect]
     Dates: end: 20091201

REACTIONS (1)
  - DEATH [None]
